FAERS Safety Report 18114802 (Version 30)
Quarter: 2025Q1

REPORT INFORMATION
  Report Type: Spontaneous
  Country: US (occurrence: US)
  Receive Date: 20200805
  Receipt Date: 20250107
  Transmission Date: 20250408
  Serious: Yes (Hospitalization, Other)
  Sender: PFIZER
  Company Number: US-PFIZER INC-2020295048

PATIENT
  Age: 71 Year
  Sex: Female
  Weight: 83.91 kg

DRUGS (8)
  1. TIKOSYN [Suspect]
     Active Substance: DOFETILIDE
     Indication: Cardiac disorder
     Dates: start: 2017
  2. TIKOSYN [Suspect]
     Active Substance: DOFETILIDE
     Indication: Arrhythmia
     Dosage: TAKE 1 CAPSULE BY MOUTH 2 TIMES DAILY
     Route: 048
     Dates: end: 20240712
  3. TIKOSYN [Suspect]
     Active Substance: DOFETILIDE
     Indication: Atrial fibrillation
     Dosage: TAKES IT 9 AM AND 12 AM, EVERY 12 HOURS
     Route: 048
     Dates: start: 20240724
  4. TIKOSYN [Suspect]
     Active Substance: DOFETILIDE
     Indication: Tachycardia
     Dosage: 0.125, 2 AM - 2 PM ORALLY DAILY
     Route: 048
  5. TIKOSYN [Suspect]
     Active Substance: DOFETILIDE
     Dosage: 125 MCG 2 CAPSULES TWICE A DAY
     Route: 048
  6. TIKOSYN [Suspect]
     Active Substance: DOFETILIDE
     Dosage: TAKE 1 CAPSULE EVERY 12 (TWELVE) HOURS BY MOUTH
     Route: 048
  7. TIKOSYN [Suspect]
     Active Substance: DOFETILIDE
     Dosage: 125 MICROGRAMS, TWO IN THE MORNING AND 12 HOURS LATER TWO MORE
  8. ELIQUIS [Concomitant]
     Active Substance: APIXABAN
     Indication: Anticoagulant therapy

REACTIONS (9)
  - Product storage error [Recovering/Resolving]
  - Poor quality product administered [Recovering/Resolving]
  - Product quality issue [Recovering/Resolving]
  - Drug ineffective [Recovering/Resolving]
  - Neoplasm progression [Unknown]
  - Tachycardia [Recovered/Resolved]
  - Wrong strength [Unknown]
  - Intentional product misuse [Unknown]
  - Memory impairment [Unknown]

NARRATIVE: CASE EVENT DATE: 20240627
